FAERS Safety Report 18263514 (Version 1)
Quarter: 2020Q3

REPORT INFORMATION
  Report Type: Spontaneous
  Country: US (occurrence: US)
  Receive Date: 20200914
  Receipt Date: 20200914
  Transmission Date: 20201103
  Serious: Yes (Other)
  Sender: FDA-Public Use
  Company Number: US-PFIZER INC-2020351935

PATIENT
  Age: 69 Year
  Sex: Male

DRUGS (1)
  1. RAPAMUNE [Suspect]
     Active Substance: SIROLIMUS
     Dosage: 1 MG, 1X/DAY [TAKE 2 TABLETS BY MOUTH EVERY MORNING]
     Route: 048

REACTIONS (1)
  - Pulmonary mycosis [Unknown]
